FAERS Safety Report 8031550-7 (Version None)
Quarter: 2012Q1

REPORT INFORMATION
  Report Type: 
  Country: None (occurrence: None)
  Receive Date: 20120109
  Receipt Date: 20111230
  Transmission Date: 20120608
  Serious: Yes (Other)
  Sender: FDA-Public Use
  Company Number: CA-NOVOPROD-342318

PATIENT

DRUGS (16)
  1. ATORVASTATIN CALCIUM [Concomitant]
  2. FLUTICASONE FUROATE [Concomitant]
     Route: 055
  3. CENTRUM                            /00554501/ [Concomitant]
  4. VICTOZA [Suspect]
     Indication: PRODUCT USED FOR UNKNOWN INDICATION
     Dosage: 1.2 MG, QD
     Route: 058
  5. DOMPERIDONE [Concomitant]
     Route: 048
  6. VITAMIN D [Concomitant]
  7. INSULIN [Concomitant]
  8. LANTUS [Concomitant]
     Route: 058
  9. NAPROXEN [Concomitant]
  10. TYLENOL W/ CODEINE [Concomitant]
     Route: 048
  11. FERROUS SULFATE TAB [Concomitant]
     Route: 048
  12. BETAMETHASONE [Concomitant]
     Route: 045
  13. HUMALOG [Concomitant]
  14. METFORMIN HCL [Concomitant]
  15. RABEPRAZOLE SODIUM [Concomitant]
  16. CALCIUM CARBONATE [Concomitant]

REACTIONS (2)
  - BLOOD MAGNESIUM DECREASED [None]
  - MUSCLE SPASMS [None]
